FAERS Safety Report 9605602 (Version 2)
Quarter: 2013Q4

REPORT INFORMATION
  Report Type: Spontaneous
  Country: US (occurrence: US)
  Receive Date: 20131008
  Receipt Date: 20131016
  Transmission Date: 20140711
  Serious: Yes (Other)
  Sender: FDA-Public Use
  Company Number: US-BAXTER-2013BAX039060

PATIENT
  Age: 48 Year
  Sex: Female
  Weight: 100 kg

DRUGS (8)
  1. GAMMAGARD LIQUID [Suspect]
     Indication: IMMUNODEFICIENCY COMMON VARIABLE
     Route: 058
     Dates: start: 201212, end: 201305
  2. GAMMAGARD LIQUID [Suspect]
     Route: 058
     Dates: start: 20130924, end: 20130924
  3. GAMMAGARD LIQUID [Suspect]
     Route: 058
     Dates: start: 201307
  4. GAMMAGARD LIQUID [Suspect]
     Route: 058
     Dates: start: 201309, end: 201309
  5. GAMMAGARD LIQUID [Suspect]
     Route: 058
     Dates: start: 201309
  6. PLAQUENIL [Concomitant]
     Indication: IMMUNE SYSTEM DISORDER
     Route: 048
  7. PLAQUENIL [Concomitant]
     Indication: CONNECTIVE TISSUE DISORDER
  8. MACROBID [Concomitant]
     Indication: CYSTITIS INTERSTITIAL
     Route: 048

REACTIONS (7)
  - Exostosis [Not Recovered/Not Resolved]
  - Pyrexia [Not Recovered/Not Resolved]
  - Musculoskeletal stiffness [Not Recovered/Not Resolved]
  - Neck pain [Not Recovered/Not Resolved]
  - Headache [Not Recovered/Not Resolved]
  - Drug dose omission [Unknown]
  - Insomnia [Recovered/Resolved]
